FAERS Safety Report 7521128-3 (Version None)
Quarter: 2011Q2

REPORT INFORMATION
  Report Type: 
  Country: None (occurrence: None)
  Receive Date: 20110603
  Receipt Date: 20101221
  Transmission Date: 20111010
  Serious: Yes (Death, Hospitalization, Other)
  Sender: FDA-Public Use
  Company Number: IE-BAYER-201047802GPV

PATIENT
  Age: 68 Year
  Sex: Male
  Weight: 64 kg

DRUGS (16)
  1. LIPITOR [Concomitant]
     Dosage: 40 MG (DAILY DOSE), , ORAL
     Route: 048
     Dates: start: 20090101
  2. DEXAMETHASONE [Concomitant]
     Dosage: 4 MG (DAILY DOSE), , ORAL
     Route: 048
     Dates: start: 20091115
  3. SERETIDE [Concomitant]
     Route: 055
     Dates: start: 20050101, end: 20101118
  4. SORAFENIB (RAF KINASE INHIBITOR) [Suspect]
     Indication: OESOPHAGEAL ADENOCARCINOMA
     Dosage: 250 MG, UNK
     Route: 048
     Dates: start: 20100920, end: 20101115
  5. SINEMET [Concomitant]
     Dosage: 37.5 MG (DAILY DOSE), , ORAL
     Route: 048
     Dates: start: 20100601
  6. SINGULAIR [Concomitant]
     Dosage: 10 MG (DAILY DOSE), , ORAL
     Route: 048
     Dates: start: 20090101
  7. VENTOLIN DS [Concomitant]
     Route: 055
     Dates: start: 20100927, end: 20101118
  8. XANAX [Concomitant]
     Dosage: 5 MG (DAILY DOSE), , ORAL
     Route: 048
     Dates: start: 20090101, end: 20101118
  9. ZOPICLONE [Concomitant]
     Dosage: 7.5 MG (DAILY DOSE), , ORAL
     Route: 048
     Dates: start: 20090101
  10. CALOGEN [ARACHIS HYPOGAEA OIL] [Concomitant]
     Dosage: 45 MG (DAILY DOSE), , ORAL
     Route: 048
     Dates: start: 20100927, end: 20101118
  11. COMBIVENT [Concomitant]
     Dosage: NEBULIZER
     Route: 055
     Dates: start: 20050101, end: 20101118
  12. GLUCOPHAGE [Concomitant]
     Dosage: 2000 MG (DAILY DOSE), , ORAL
     Route: 048
     Dates: start: 20090101
  13. DIAMICRON [Concomitant]
     Dosage: 30 MG (DAILY DOSE), , ORAL
     Route: 048
     Dates: start: 20090101
  14. CALOGEN [ARACHIS HYPOGAEA OIL] [Concomitant]
     Dosage: 30 ML, TID
     Route: 048
     Dates: start: 20101124
  15. THEOPHYLLINE [Concomitant]
     Dosage: 200 MG (DAILY DOSE), , ORAL
     Route: 048
     Dates: start: 20050101
  16. METICILIN [Concomitant]
     Dosage: 20 MG (DAILY DOSE), PRN, ORAL
     Route: 048
     Dates: start: 20100927

REACTIONS (5)
  - SYNCOPE [None]
  - OESOPHAGEAL ADENOCARCINOMA [None]
  - ORTHOSTATIC HYPOTENSION [None]
  - ATRIAL FIBRILLATION [None]
  - CONFUSIONAL STATE [None]
